FAERS Safety Report 5235539-2 (Version None)
Quarter: 2007Q1

REPORT INFORMATION
  Report Type: 
  Country: None (occurrence: None)
  Receive Date: 20070208
  Receipt Date: 20070208
  Transmission Date: 20070707
  Serious: Yes (Other)
  Sender: FDA-Public Use
  Company Number: None

PATIENT
  Age: 93 Year
  Sex: Male
  Weight: 48 kg

DRUGS (4)
  1. ROCEPHIN [Suspect]
     Indication: PNEUMONIA
     Dosage: 1 GRAM  DAILY  IV
     Route: 042
     Dates: start: 20070122, end: 20070126
  2. AZITHROMYCIN [Concomitant]
  3. GUAIFENESIN [Concomitant]
  4. ALBUTEROL [Concomitant]

REACTIONS (1)
  - PLATELET COUNT DECREASED [None]
